FAERS Safety Report 16192804 (Version 1)
Quarter: 2019Q2

REPORT INFORMATION
  Report Type: Spontaneous
  Country: CN (occurrence: CN)
  Receive Date: 20190412
  Receipt Date: 20190412
  Transmission Date: 20190711
  Serious: Yes (Other)
  Sender: FDA-Public Use
  Company Number: CN-BAXTER-2019BAX007165

PATIENT
  Age: 65 Year
  Sex: Male
  Weight: 88 kg

DRUGS (12)
  1. ENDOXAN [Suspect]
     Active Substance: CYCLOPHOSPHAMIDE
     Dosage: 4TH NEOADJUVANT CHEMOTHERAPY; DILUTED WITH 100 ML OF GLUCOSE INJECTION
     Route: 041
     Dates: start: 20190226, end: 20190226
  2. 5% GLUCOSE  INJECTION [Suspect]
     Active Substance: DEXTROSE
     Dosage: 4TH NEOADJUVANT CHEMOTHERAPY; DILUTED WITH EPIRUBICIN HYDROCHLORIDE
     Route: 041
     Dates: start: 20190226, end: 20190226
  3. 5% GLUCOSE  INJECTION [Suspect]
     Active Substance: DEXTROSE
     Dosage: 4TH NEOADJUVANT CHEMOTHERAPY; DILUTED WITH CYCLOPHOSPHAMIDE INJECTION
     Route: 041
     Dates: start: 20190226, end: 20190226
  4. 5% GLUCOSE  INJECTION [Suspect]
     Active Substance: DEXTROSE
     Dosage: DILUTED WITH EPIRUBICIN HYDROCHLORIDE; DOSE REINTRODUCED
     Route: 041
  5. PHARMORUBICIN RD [Suspect]
     Active Substance: EPIRUBICIN
     Dosage: 4TH NEOADJUVANT CHEMOTHERAPY; DILUTED WITH 100 ML OF GLUCOSE INJECTION
     Route: 041
     Dates: start: 20190226, end: 20190226
  6. ENDOXAN [Suspect]
     Active Substance: CYCLOPHOSPHAMIDE
     Indication: BREAST CANCER FEMALE
     Dosage: THREE CHEMOTHERAPIES; DILUTED WITH GLUCOSE INJECTION
     Route: 041
  7. 5% GLUCOSE  INJECTION [Suspect]
     Active Substance: DEXTROSE
     Dosage: DILUTED WITH CYCLOPHOSPHAMIDE INJECTION; DOSE REINTRODUCED
     Route: 041
  8. PHARMORUBICIN RD [Suspect]
     Active Substance: EPIRUBICIN
     Dosage: DILUTED WITH GLUCOSE INJECTION; DOSE REINTRODUCED
     Route: 041
  9. 5% GLUCOSE  INJECTION [Suspect]
     Active Substance: DEXTROSE
     Dosage: THREE CHEMOTHERAPIES; DILUTED WITH CYCLOPHOSPHAMIDE INJECTION
     Route: 041
  10. 5% GLUCOSE  INJECTION [Suspect]
     Active Substance: DEXTROSE
     Indication: MEDICATION DILUTION
     Dosage: THREE CHEMOTHERAPIES; DILUTED WITH EPIRUBICIN HYDROCHLORIDE FOR INJECTION
     Route: 041
  11. PHARMORUBICIN RD [Suspect]
     Active Substance: EPIRUBICIN
     Indication: BREAST CANCER FEMALE
     Dosage: THREE CHEMOTHERAPIES; DILUTED WITH GLUCOSE INJECTION
     Route: 041
  12. ENDOXAN [Suspect]
     Active Substance: CYCLOPHOSPHAMIDE
     Dosage: DILUTED WITH GLUCOSE INJECTION; DOSE REINTRODUCED
     Route: 041

REACTIONS (1)
  - Bone marrow failure [Unknown]

NARRATIVE: CASE EVENT DATE: 20190312
